FAERS Safety Report 7546842-5 (Version None)
Quarter: 2011Q2

REPORT INFORMATION
  Report Type: 
  Country: None (occurrence: None)
  Receive Date: 20110614
  Receipt Date: 20110609
  Transmission Date: 20111010
  Serious: Yes (Death, Hospitalization)
  Sender: FDA-Public Use
  Company Number: DE-BRISTOL-MYERS SQUIBB COMPANY-15821945

PATIENT
  Age: 64 Year
  Sex: Male
  Weight: 44 kg

DRUGS (4)
  1. CISPLATIN [Suspect]
     Indication: HEAD AND NECK CANCER
     Dosage: RECENT INFU:09SEP10
     Route: 042
     Dates: start: 20100819, end: 20100909
  2. FLUOROURACIL [Suspect]
     Indication: HEAD AND NECK CANCER
     Dosage: RECENT INFU:09SEP10
     Route: 042
     Dates: start: 20100819, end: 20100909
  3. DOCETAXEL [Suspect]
     Indication: HEAD AND NECK CANCER
     Dosage: RECENT INFU:09SEP10
     Route: 042
     Dates: start: 20100819, end: 20100909
  4. CETUXIMAB [Suspect]
     Indication: HEAD AND NECK CANCER
     Dosage: RECENT INFU:15SEP10
     Route: 042
     Dates: start: 20100819, end: 20100915

REACTIONS (1)
  - CLOSTRIDIAL INFECTION [None]
